FAERS Safety Report 7300848-X (Version None)
Quarter: 2010Q4

REPORT INFORMATION
  Report Type: 
  Country: None (occurrence: None)
  Receive Date: 20101230
  Receipt Date: 20100728
  Transmission Date: 20110411
  Serious: Yes (Other)
  Sender: FDA-Public Use
  Company Number: 20100347

PATIENT
  Age: 31 Year
  Sex: Female
  Weight: 40.8237 kg

DRUGS (1)
  1. VENOFER [Suspect]
     Indication: RENAL FAILURE CHRONIC
     Dosage: 200 MG IN 250 ML NSS INTRAVENOUS
     Route: 042
     Dates: start: 20100426

REACTIONS (1)
  - BACK PAIN [None]
